FAERS Safety Report 9330609 (Version 2)
Quarter: 2013Q4

REPORT INFORMATION
  Report Type: Spontaneous
  Country: US (occurrence: US)
  Receive Date: 20130605
  Receipt Date: 20131024
  Transmission Date: 20140711
  Serious: Yes (Hospitalization)
  Sender: FDA-Public Use
  Company Number: US-B.I. PHARMACEUTICALS,INC./RIDGEFIELD-2013-BI-15444BP

PATIENT
  Age: 78 Year
  Sex: Female
  Weight: 53.98 kg

DRUGS (9)
  1. PRADAXA [Suspect]
     Indication: ATRIAL FIBRILLATION
     Dosage: 150 MG
     Route: 048
     Dates: start: 20111214, end: 20120120
  2. ASPIRIN [Suspect]
     Indication: ATRIAL FIBRILLATION
     Dosage: 81 MG
     Route: 048
  3. OXYGEN [Concomitant]
     Indication: CHRONIC OBSTRUCTIVE PULMONARY DISEASE
  4. AMIODARONE [Concomitant]
     Dosage: 200 MG
     Route: 048
  5. BISOPROLOL [Concomitant]
     Dosage: 5 MG
     Route: 048
  6. DILTIAZEM CD [Concomitant]
     Dosage: 240 MG
     Route: 048
  7. FUROSEMIDE [Concomitant]
     Dosage: 40 MG
     Route: 048
  8. LIPITOR [Concomitant]
     Dosage: 20 MG
     Route: 048
  9. SYMBICORT [Concomitant]
     Dosage: 4 PUF

REACTIONS (4)
  - Gastrointestinal haemorrhage [Unknown]
  - Haemorrhagic anaemia [Unknown]
  - Fall [Unknown]
  - Rotator cuff syndrome [Unknown]
